FAERS Safety Report 25234794 (Version 1)
Quarter: 2025Q2

REPORT INFORMATION
  Report Type: Spontaneous
  Country: CN (occurrence: CN)
  Receive Date: 20250424
  Receipt Date: 20250424
  Transmission Date: 20250716
  Serious: Yes (Other)
  Sender: OCTAPHARMA
  Company Number: CN-OCTA-2025000321

PATIENT
  Age: 80 Year
  Sex: Male
  Weight: 62 kg

DRUGS (1)
  1. ALBUMIN HUMAN [Suspect]
     Active Substance: ALBUMIN HUMAN
     Indication: Hypoproteinaemia
     Route: 042
     Dates: start: 20250415, end: 20250415

REACTIONS (5)
  - Tachypnoea [Recovering/Resolving]
  - Pyrexia [Recovering/Resolving]
  - Chills [Recovering/Resolving]
  - Ectopic atrial rhythm [Recovering/Resolving]
  - Supraventricular tachycardia [Recovering/Resolving]

NARRATIVE: CASE EVENT DATE: 20250415
